FAERS Safety Report 6526511-0 (Version None)
Quarter: 2010Q1

REPORT INFORMATION
  Report Type: 
  Country: None (occurrence: None)
  Receive Date: 20100105
  Receipt Date: 20091228
  Transmission Date: 20100710
  Serious: Yes (Hospitalization)
  Sender: FDA-Public Use
  Company Number: ES-BRISTOL-MYERS SQUIBB COMPANY-14914279

PATIENT
  Age: 59 Year
  Sex: Male

DRUGS (9)
  1. WARFARIN SODIUM [Suspect]
     Indication: ANTICOAGULANT THERAPY
  2. HEPARIN SODIUM [Suspect]
     Indication: ANTICOAGULANT THERAPY
  3. FONDAPARINUX SODIUM [Suspect]
     Indication: ANTICOAGULANT THERAPY
  4. FUROSEMIDE [Concomitant]
     Dates: start: 20080101
  5. DIGOXIN [Concomitant]
     Dates: start: 20080101
  6. ASPIRIN [Concomitant]
     Dates: start: 20080101
  7. HYDRALAZINE HCL [Concomitant]
     Dates: start: 20080101
  8. CARVEDILOL [Concomitant]
     Dates: start: 20080101
  9. GLYCERYL TRINITRATE [Concomitant]
     Route: 062

REACTIONS (4)
  - BRONCHIAL HAEMORRHAGE [None]
  - HAEMATURIA [None]
  - HEPARIN-INDUCED THROMBOCYTOPENIA [None]
  - INTERNATIONAL NORMALISED RATIO INCREASED [None]
